FAERS Safety Report 14696214 (Version 1)
Quarter: 2018Q1

REPORT INFORMATION
  Report Type: Spontaneous
  Country: US (occurrence: US)
  Receive Date: 20180329
  Receipt Date: 20180329
  Transmission Date: 20180509
  Serious: No
  Sender: FDA-Public Use
  Company Number: US-SUNOVION-2018SUN001045

PATIENT
  Sex: Male

DRUGS (4)
  1. BUDESONIDE. [Concomitant]
     Active Substance: BUDESONIDE
     Dosage: UNK
  2. BROVANA [Concomitant]
     Active Substance: ARFORMOTEROL TARTRATE
     Indication: CHRONIC OBSTRUCTIVE PULMONARY DISEASE
     Dosage: 15MCG/2ML
     Route: 055
  3. OXYCODONE [Concomitant]
     Active Substance: OXYCODONE
     Dosage: UNK
  4. LONHALA MAGNAIR [Suspect]
     Active Substance: GLYCOPYRROLATE
     Indication: CHRONIC OBSTRUCTIVE PULMONARY DISEASE
     Dosage: 25MCG/1ML, BID
     Route: 055
     Dates: start: 201803

REACTIONS (2)
  - Blood pressure decreased [Unknown]
  - Dyspnoea [Unknown]
